FAERS Safety Report 5346349-X (Version None)
Quarter: 2007Q2

REPORT INFORMATION
  Report Type: 
  Country: None (occurrence: None)
  Receive Date: 20070605
  Receipt Date: 20070601
  Transmission Date: 20071010
  Serious: Yes (Hospitalization)
  Sender: FDA-Public Use
  Company Number: GB-ROXANE LABORATORIES, INC-2007-DE-03080GD

PATIENT
  Sex: Female

DRUGS (2)
  1. ST. JOHN'S WORT EXTRACT [Suspect]
  2. CITALOPRAM [Suspect]

REACTIONS (3)
  - DRUG INTERACTION [None]
  - SEROTONIN SYNDROME [None]
  - SUICIDAL IDEATION [None]
